FAERS Safety Report 12454968 (Version 1)
Quarter: 2016Q2

REPORT INFORMATION
  Report Type: Spontaneous
  Country: US (occurrence: None)
  Receive Date: 20160609
  Receipt Date: 20160609
  Transmission Date: 20160815
  Serious: Yes (Other)
  Sender: FDA-Public Use
  Company Number: None

PATIENT
  Age: 54 Year
  Sex: Female
  Weight: 147.87 kg

DRUGS (14)
  1. BIOTIN [Concomitant]
     Active Substance: BIOTIN
  2. LISINOPRIL. [Concomitant]
     Active Substance: LISINOPRIL
  3. FLAXSEED [Concomitant]
     Active Substance: FLAX SEED
  4. FOLIC ACID. [Concomitant]
     Active Substance: FOLIC ACID
  5. BETA CAROTENE [Concomitant]
  6. OMEPRAZOLE. [Concomitant]
     Active Substance: OMEPRAZOLE
  7. MAGNESIUM [Concomitant]
     Active Substance: MAGNESIUM
  8. BABY ASPIRIN [Concomitant]
     Active Substance: ASPIRIN
  9. FLUOXETINE [Concomitant]
     Active Substance: FLUOXETINE HYDROCHLORIDE
  10. XANAX [Concomitant]
     Active Substance: ALPRAZOLAM
  11. FISH OIL [Concomitant]
     Active Substance: FISH OIL
  12. RED YEAST RICE [Concomitant]
     Active Substance: DIETARY SUPPLEMENT
  13. VITAMIN D [Concomitant]
     Active Substance: CHOLECALCIFEROL
  14. TRULICITY [Suspect]
     Active Substance: DULAGLUTIDE
     Indication: TYPE 2 DIABETES MELLITUS
     Dosage: INJ STOMACH
     Dates: start: 20160131, end: 20160417

REACTIONS (10)
  - Mental impairment [None]
  - Blood glucose decreased [None]
  - Depression [None]
  - Hyperhidrosis [None]
  - Cognitive disorder [None]
  - Impaired driving ability [None]
  - Asthenia [None]
  - Palpitations [None]
  - Fatigue [None]
  - Tremor [None]

NARRATIVE: CASE EVENT DATE: 20160131
